FAERS Safety Report 7281766-2 (Version None)
Quarter: 2011Q1

REPORT INFORMATION
  Report Type: 
  Country: None (occurrence: None)
  Receive Date: 20110208
  Receipt Date: 20100708
  Transmission Date: 20110831
  Serious: Yes (Other)
  Sender: FDA-Public Use
  Company Number: US-PFIZER INC-2010085975

PATIENT

DRUGS (1)
  1. SUTENT [Suspect]

REACTIONS (2)
  - INCORRECT STORAGE OF DRUG [None]
  - YELLOW SKIN [None]
